FAERS Safety Report 12947686 (Version 3)
Quarter: 2016Q4

REPORT INFORMATION
  Report Type: Spontaneous
  Country: US (occurrence: US)
  Receive Date: 20161116
  Receipt Date: 20161216
  Transmission Date: 20170207
  Serious: Yes (Other)
  Sender: FDA-Public Use
  Company Number: US-PFIZER INC-2016527144

PATIENT
  Age: 57 Year
  Sex: Female

DRUGS (12)
  1. DOXYCYCLINE. [Concomitant]
     Active Substance: DOXYCYCLINE
     Indication: CONNECTIVE TISSUE DISORDER
     Dosage: 100 MG, DAILY (QD)
     Dates: start: 2015
  2. IMURAN [Concomitant]
     Active Substance: AZATHIOPRINE
     Indication: CONNECTIVE TISSUE DISORDER
     Dosage: 50 MG, 2X/DAY (BID)
     Dates: start: 2011
  3. FLUCONAZOLE. [Concomitant]
     Active Substance: FLUCONAZOLE
     Indication: VULVOVAGINAL CANDIDIASIS
     Dosage: 100 MG, WEEKLY
     Dates: start: 2016
  4. CLEOCIN [Suspect]
     Active Substance: CLINDAMYCIN PHOSPHATE
     Indication: PROPHYLAXIS
     Dosage: 300 MG, 4X/DAY
     Route: 048
     Dates: start: 20151231, end: 20160106
  5. PLAQUENIL [Concomitant]
     Active Substance: HYDROXYCHLOROQUINE SULFATE
     Dosage: 200 MG, UNK
     Route: 048
  6. CRESTOR [Concomitant]
     Active Substance: ROSUVASTATIN CALCIUM
     Dosage: UNK
     Dates: start: 201610
  7. CLEOCIN [Suspect]
     Active Substance: CLINDAMYCIN PHOSPHATE
     Indication: JOINT SWELLING
  8. IMURAN [Concomitant]
     Active Substance: AZATHIOPRINE
     Dosage: 50 MG, UNK
  9. MOBIC [Concomitant]
     Active Substance: MELOXICAM
     Dosage: 15 MG, UNK
  10. MOBIC [Concomitant]
     Active Substance: MELOXICAM
     Indication: CONNECTIVE TISSUE DISORDER
     Dosage: 15 MG, DAILY (QD)
     Dates: start: 2014
  11. PLAQUENIL [Concomitant]
     Active Substance: HYDROXYCHLOROQUINE SULFATE
     Indication: CONNECTIVE TISSUE DISORDER
     Dosage: 200 MG, 2X/DAY
     Route: 048
     Dates: start: 2010
  12. CRESTOR [Concomitant]
     Active Substance: ROSUVASTATIN CALCIUM
     Indication: BLOOD CHOLESTEROL INCREASED
     Dosage: 5 MG, DAILY
     Dates: start: 2016

REACTIONS (7)
  - Abdominal pain upper [Unknown]
  - Hepatic enzyme increased [Unknown]
  - Clostridium difficile infection [Recovered/Resolved with Sequelae]
  - Drug hypersensitivity [Unknown]
  - Drug prescribing error [Unknown]
  - Blood creatine phosphokinase increased [Unknown]
  - Abdominal pain [Unknown]

NARRATIVE: CASE EVENT DATE: 20160105
